FAERS Safety Report 21450361 (Version 2)
Quarter: 2025Q1

REPORT INFORMATION
  Report Type: Spontaneous
  Country: US (occurrence: US)
  Receive Date: 20221013
  Receipt Date: 20250203
  Transmission Date: 20250409
  Serious: Yes (Hospitalization, Other)
  Sender: SANOFI AVENTIS
  Company Number: US-SA-2022SA417094

PATIENT
  Age: 59 Year
  Sex: Female

DRUGS (3)
  1. FABRAZYME [Suspect]
     Active Substance: AGALSIDASE BETA
     Indication: Fabry^s disease
     Dosage: 80 MG, Q10D
     Route: 042
     Dates: start: 20200414, end: 20220929
  2. FABRAZYME [Suspect]
     Active Substance: AGALSIDASE BETA
     Dosage: 80 MG, Q10D
     Route: 042
  3. PROLIA [Suspect]
     Active Substance: DENOSUMAB
     Route: 065

REACTIONS (5)
  - Blood electrolytes abnormal [Unknown]
  - Pneumonia [Unknown]
  - Weight decreased [Unknown]
  - COVID-19 [Unknown]
  - Inappropriate schedule of product administration [Unknown]

NARRATIVE: CASE EVENT DATE: 20200414
